FAERS Safety Report 12909848 (Version 2)
Quarter: 2016Q4

REPORT INFORMATION
  Report Type: Spontaneous
  Country: US (occurrence: US)
  Receive Date: 20161104
  Receipt Date: 20161118
  Transmission Date: 20170207
  Serious: No
  Sender: FDA-Public Use
  Company Number: PHEH2016US027821

PATIENT
  Sex: Female

DRUGS (1)
  1. ESTRADIOL. [Suspect]
     Active Substance: ESTRADIOL
     Indication: PRODUCT USED FOR UNKNOWN INDICATION
     Dosage: 0.075 MG, UNK
     Route: 062

REACTIONS (7)
  - Dehydration [Unknown]
  - Palpitations [Unknown]
  - Weight increased [Unknown]
  - Pain [Unknown]
  - Chest pain [Unknown]
  - Alopecia [Unknown]
  - Feeling abnormal [Unknown]
